FAERS Safety Report 14330294 (Version 1)
Quarter: 2017Q4

REPORT INFORMATION
  Report Type: Report from Study
  Country: IE (occurrence: IE)
  Receive Date: 20171227
  Receipt Date: 20171227
  Transmission Date: 20180321
  Serious: Yes (Other)
  Sender: FDA-Public Use
  Company Number: IE-TAKEDA-2017MPI011935

PATIENT
  Age: 67 Year
  Sex: Female

DRUGS (10)
  1. BISOLVON [Concomitant]
     Active Substance: BROMHEXINE HYDROCHLORIDE
     Dosage: 10 ML, TID
     Route: 050
  2. ZOTROLE [Concomitant]
     Dosage: 15 MG, QD
     Route: 050
  3. MYCOSTATIN [Concomitant]
     Active Substance: NYSTATIN
     Dosage: UNK, QD
     Route: 050
  4. FUCIDIN [Concomitant]
     Active Substance: FUSIDIC ACID
     Dosage: 20 MG, BID
     Route: 050
  5. VELCADE [Suspect]
     Active Substance: BORTEZOMIB
     Indication: PLASMA CELL MYELOMA
     Dosage: 1 MG/M2, UNK
     Route: 058
     Dates: start: 20130422, end: 20171218
  6. PARACETAMOL [Concomitant]
     Active Substance: ACETAMINOPHEN
     Dosage: 1000 MG, UNK
     Route: 050
  7. VALTREX [Concomitant]
     Active Substance: VALACYCLOVIR HYDROCHLORIDE
     Dosage: 500 MG, QD
     Route: 050
  8. DIFENE [Concomitant]
     Active Substance: DICLOFENAC SODIUM
     Dosage: 1 DF, TID
     Route: 050
  9. LANSOPRAZOLE. [Concomitant]
     Active Substance: LANSOPRAZOLE
     Dosage: 15 MG, QD
     Route: 050
  10. MYCOSTATIN [Concomitant]
     Active Substance: NYSTATIN
     Dosage: 5 ML, TID
     Route: 050

REACTIONS (1)
  - Paraproteinaemia [Unknown]

NARRATIVE: CASE EVENT DATE: 20171218
